FAERS Safety Report 4550001-8 (Version None)
Quarter: 2005Q1

REPORT INFORMATION
  Report Type: 
  Country: None (occurrence: None)
  Receive Date: 20050110
  Receipt Date: 20050104
  Transmission Date: 20050727
  Serious: Yes (Hospitalization)
  Sender: FDA-Public Use
  Company Number: TPA2005A00012

PATIENT
  Age: 71 Year
  Sex: Male
  Weight: 97.5234 kg

DRUGS (12)
  1. ACTOS [Suspect]
     Indication: DIABETES MELLITUS NON-INSULIN-DEPENDENT
     Dosage: SEE IMAGE
     Route: 048
     Dates: start: 20041028, end: 20041128
  2. ACTOS [Suspect]
     Indication: DIABETES MELLITUS NON-INSULIN-DEPENDENT
     Dosage: SEE IMAGE
     Route: 048
     Dates: start: 20041128
  3. TOPROL (METOPROLOL) [Concomitant]
  4. UNKNOWN BLOOD PRESSURE MEDICATIONS (ANTIHYPERTENSIVES) [Concomitant]
  5. XALATAN [Concomitant]
  6. UNKNOWN EYE DROPS (TETRYZOLINE HYDROCHLORIDE) [Concomitant]
  7. UNKNOWN WATER PILL (DIURETICS) [Concomitant]
  8. MULTIVITAMIN (MULTIVITAMINS) [Concomitant]
  9. VITAMIN C (ASCORBIC ACID) [Concomitant]
  10. VITAMIN E [Concomitant]
  11. MAGNESIUM (MAGNESIUM) [Concomitant]
  12. CALCIUM (CALCIUM) [Concomitant]

REACTIONS (3)
  - ABDOMINAL PAIN UPPER [None]
  - SHOULDER OPERATION [None]
  - THERAPY NON-RESPONDER [None]
